FAERS Safety Report 8145019-2 (Version None)
Quarter: 2012Q1

REPORT INFORMATION
  Report Type: 
  Country: None (occurrence: None)
  Receive Date: 20120217
  Receipt Date: 20120208
  Transmission Date: 20120608
  Serious: Yes (Hospitalization)
  Sender: FDA-Public Use
  Company Number: PHEH2012US003441

PATIENT
  Sex: Female

DRUGS (6)
  1. ATENOLOL [Concomitant]
     Dosage: UNK UKN, UNK
  2. TIZANIDINE HCL [Concomitant]
     Dosage: UNK UKN, UNK
  3. XANAX [Concomitant]
     Dosage: UNK UKN, UNK
  4. DILAUDID [Concomitant]
     Dosage: UNK UKN, UNK
  5. TASIGNA [Suspect]
     Indication: CHRONIC MYELOID LEUKAEMIA
     Dosage: 300 MG, BID
     Route: 048
     Dates: start: 20120131
  6. OMEPRAZOLE [Concomitant]
     Dosage: UNK UKN, UNK

REACTIONS (3)
  - DRUG INTOLERANCE [None]
  - DEHYDRATION [None]
  - VOMITING [None]
